FAERS Safety Report 8076204-6 (Version None)
Quarter: 2012Q1

REPORT INFORMATION
  Report Type: 
  Country: None (occurrence: None)
  Receive Date: 20120127
  Receipt Date: 20120125
  Transmission Date: 20120608
  Serious: Yes (Life-Threatening, Hospitalization)
  Sender: FDA-Public Use
  Company Number: GB-PFIZER INC-2009268663

PATIENT
  Age: 78 Year
  Sex: Male

DRUGS (16)
  1. SPIRONOLACTONE [Suspect]
     Indication: ALCOHOLIC LIVER DISEASE
     Dosage: 100 MG, 4X/DAY
     Route: 048
     Dates: end: 20090909
  2. RAMIPRIL [Interacting]
     Indication: HYPERTENSION
     Dosage: 2.5 MG, 1X/DAY
     Route: 048
     Dates: end: 20090909
  3. COTRIM [Interacting]
     Indication: PROPHYLAXIS
     Dosage: 1960 MG, 5X WEEKLY, CYCLIC
     Route: 048
     Dates: start: 20090820, end: 20090909
  4. SUCRALFATE [Concomitant]
  5. LACTULOSE [Concomitant]
  6. NOVOLOG MIX 70/30 [Concomitant]
  7. PROPRANOLOL [Concomitant]
  8. ISOSORBIDE MONONITRATE [Concomitant]
  9. LANSOPRAZOLE [Concomitant]
  10. TAMSULOSIN [Concomitant]
  11. THIAMINE [Concomitant]
  12. RAMIPRIL [Interacting]
     Indication: MYOCARDIAL ISCHAEMIA
  13. ACETYLSALICYLIC ACID [Concomitant]
  14. COTRIM [Interacting]
     Indication: PERITONITIS BACTERIAL
  15. ALLOPURINOL [Concomitant]
  16. GLYCERYL TRINITRATE [Concomitant]

REACTIONS (2)
  - DRUG INTERACTION [None]
  - HYPERKALAEMIA [None]
